FAERS Safety Report 12880592 (Version 1)
Quarter: 2016Q4

REPORT INFORMATION
  Report Type: Spontaneous
  Country: US (occurrence: US)
  Receive Date: 20161025
  Receipt Date: 20161025
  Transmission Date: 20170207
  Serious: No
  Sender: FDA-Public Use
  Company Number: US-ABBVIE-16P-163-1746117-00

PATIENT
  Age: 51 Year
  Sex: Male

DRUGS (1)
  1. TARKA [Suspect]
     Active Substance: TRANDOLAPRIL\VERAPAMIL HYDROCHLORIDE
     Indication: HYPERTENSION
     Route: 048
     Dates: start: 2014, end: 20161001

REACTIONS (1)
  - Angioedema [Not Recovered/Not Resolved]
